FAERS Safety Report 17443477 (Version 1)
Quarter: 2020Q1

REPORT INFORMATION
  Report Type: Report from Study
  Country: IN (occurrence: IN)
  Receive Date: 20200221
  Receipt Date: 20200221
  Transmission Date: 20200409
  Serious: Yes (Death, Other)
  Sender: FDA-Public Use
  Company Number: IN-ROCHE-2122120

PATIENT
  Age: 65 Year
  Sex: Female

DRUGS (1)
  1. KADCYLA [Suspect]
     Active Substance: ADO-TRASTUZUMAB EMTANSINE
     Indication: BREAST CANCER
     Route: 042
     Dates: start: 20170821

REACTIONS (17)
  - Localised infection [Unknown]
  - Ill-defined disorder [Unknown]
  - Diarrhoea [Unknown]
  - Drug ineffective [Fatal]
  - Blood bilirubin increased [Recovered/Resolved]
  - Peripheral swelling [Unknown]
  - Hypokinesia [Unknown]
  - Pyrexia [Recovered/Resolved]
  - Infection [Unknown]
  - Platelet count decreased [Recovered/Resolved]
  - Asthenia [Unknown]
  - Seizure [Fatal]
  - Recurrent cancer [Fatal]
  - White blood cell count decreased [Unknown]
  - Vomiting [Unknown]
  - Jaundice [Unknown]
  - Red blood cell count decreased [Unknown]
